FAERS Safety Report 16158959 (Version 1)
Quarter: 2019Q2

REPORT INFORMATION
  Report Type: Spontaneous
  Country: JP (occurrence: JP)
  Receive Date: 20190404
  Receipt Date: 20190404
  Transmission Date: 20190711
  Serious: Yes (Other)
  Sender: FDA-Public Use
  Company Number: PHHY2019JP076770

PATIENT
  Age: 55 Year
  Sex: Male

DRUGS (1)
  1. ISONIAZID. [Suspect]
     Active Substance: ISONIAZID
     Indication: TUBERCULOSIS
     Route: 065

REACTIONS (3)
  - Acute kidney injury [Recovered/Resolved]
  - Tubulointerstitial nephritis [Unknown]
  - Proteinuria [Recovered/Resolved]
